FAERS Safety Report 11381062 (Version 1)
Quarter: 2015Q3

REPORT INFORMATION
  Report Type: Spontaneous
  Country: US (occurrence: None)
  Receive Date: 20150813
  Receipt Date: 20150813
  Transmission Date: 20151125
  Serious: Yes (Other)
  Sender: FDA-Public Use
  Company Number: None

PATIENT
  Sex: Female
  Weight: 72.3 kg

DRUGS (1)
  1. HYDROXYCHLOROQUINE SUL TABS 200MG MYLAN [Suspect]
     Active Substance: HYDROXYCHLOROQUINE SULFATE
     Indication: RHEUMATOID ARTHRITIS
     Dosage: 1.5 TAB
     Dates: start: 2002

REACTIONS (4)
  - Diarrhoea [None]
  - Abdominal pain upper [None]
  - Product substitution issue [None]
  - Nausea [None]
